FAERS Safety Report 7605141-3 (Version None)
Quarter: 2011Q3

REPORT INFORMATION
  Report Type: 
  Country: None (occurrence: None)
  Receive Date: 20110713
  Receipt Date: 20110323
  Transmission Date: 20111222
  Serious: Yes (Other)
  Sender: FDA-Public Use
  Company Number: US-BAYER-2011-013733

PATIENT
  Age: 22 Year
  Sex: Male
  Weight: 72.562 kg

DRUGS (47)
  1. GADOLINIUM IN UNSPECIFIED DRUG [Suspect]
     Indication: NUCLEAR MAGNETIC RESONANCE IMAGING BRAIN
     Dosage: UNK
     Dates: start: 20080423, end: 20080423
  2. GADOLINIUM IN UNSPECIFIED DRUG [Suspect]
     Indication: VENOGRAM
  3. PREDNISONE [Concomitant]
     Indication: RENAL TRANSPLANT
     Dosage: UNK
     Dates: start: 19970101, end: 20010101
  4. OPTIMARK [Suspect]
     Indication: NUCLEAR MAGNETIC RESONANCE IMAGING
  5. OMNISCAN [Suspect]
     Dosage: UNK
     Dates: start: 20031111, end: 20031111
  6. MULTIHANCE [Suspect]
     Indication: NUCLEAR MAGNETIC RESONANCE IMAGING
  7. MULTIHANCE [Suspect]
     Indication: ANGIOGRAM
  8. HYDROCORTISONE [Concomitant]
  9. SENSIPAR [Concomitant]
     Indication: ADDISON'S DISEASE
     Dosage: 30 MG, QD
  10. LEVOTHYROXINE SODIUM [Concomitant]
     Indication: THYROID CANCER
     Dosage: 200 MCG (2 TABS DAILY)
  11. CATAPRES [Concomitant]
  12. ROCALTROL [Concomitant]
  13. MAGNEVIST [Suspect]
     Indication: ANGIOGRAM
  14. VITAMIN D [Concomitant]
     Indication: VITAMIN D DECREASED
     Dosage: 1.25 MG, OW
     Dates: start: 20100820
  15. LEXAPRO [Concomitant]
     Indication: DEPRESSION
     Dosage: 20 MG, QD
  16. EPOGEN [Concomitant]
  17. ADALAT CC [Concomitant]
  18. NORVASC [Concomitant]
  19. OMNISCAN [Suspect]
     Indication: ANGIOGRAM
     Dosage: UNK
     Dates: start: 20031024, end: 20031024
  20. PROHANCE [Suspect]
     Indication: ANGIOGRAM
  21. VOLTAREN [Concomitant]
     Indication: OEDEMA PERIPHERAL
     Dosage: UNK
     Dates: start: 20080401, end: 20090401
  22. PROCARDIA [Concomitant]
     Indication: BLOOD PRESSURE ABNORMAL
     Dosage: UNK
     Dates: start: 20030101, end: 20070101
  23. RENAGEL [Concomitant]
  24. FERROUS SULFATE TAB [Concomitant]
  25. GADOLINIUM IN UNSPECIFIED DRUG [Suspect]
     Indication: ANGIOGRAM
  26. HYDROCORTISONE [Concomitant]
     Indication: ADRENAL DISORDER
     Dosage: 10 MG, TID
     Dates: start: 20080101
  27. FERROUS SULFATE TAB [Concomitant]
     Indication: DIALYSIS
     Dosage: UNK
     Dates: start: 20080101
  28. ZEMPLAR [Concomitant]
  29. DIAMOX SRC [Concomitant]
  30. GADOLINIUM IN UNSPECIFIED DRUG [Suspect]
     Indication: NEOPLASM
  31. DIALVIT [Concomitant]
     Indication: DIALYSIS
     Dosage: 1 PILL DAILY
  32. CLONIDINE [Concomitant]
  33. NEPHROVITE [VIT C,VIT H,B5,B12,B9,B3,B6,B2,B1 HCL] [Concomitant]
  34. APRESOLINE [Concomitant]
  35. GADOLINIUM IN UNSPECIFIED DRUG [Suspect]
     Indication: BACK PAIN
  36. OPTIMARK [Suspect]
     Indication: ANGIOGRAM
  37. PROHANCE [Suspect]
     Indication: NUCLEAR MAGNETIC RESONANCE IMAGING
  38. EPO [Concomitant]
     Indication: DIALYSIS
     Dosage: UNK
     Dates: start: 20020101
  39. OXYCODONE HCL [Concomitant]
     Indication: PAIN
     Dosage: UNK
     Dates: start: 20030101
  40. TOPROL-XL [Concomitant]
  41. MAGNEVIST [Suspect]
     Indication: NUCLEAR MAGNETIC RESONANCE IMAGING BRAIN
     Dosage: UNK
  42. OMNISCAN [Suspect]
     Indication: NUCLEAR MAGNETIC RESONANCE IMAGING
     Dosage: UNK
     Dates: start: 20030922, end: 20030922
  43. KLONOPIN [Concomitant]
     Indication: PAIN
     Dosage: 1 MG, TID
     Dates: start: 20030101
  44. VOLTAREN [Concomitant]
     Indication: JOINT SWELLING
  45. FOSRENOL [Concomitant]
  46. SYNTHROID [Concomitant]
  47. CALCIUM CARBONATE [Concomitant]

REACTIONS (10)
  - JOINT LOCK [None]
  - MUSCULOSKELETAL PAIN [None]
  - EXTREMITY CONTRACTURE [None]
  - VASCULAR CALCIFICATION [None]
  - PAIN [None]
  - BACK PAIN [None]
  - ARTHRALGIA [None]
  - NEPHROGENIC SYSTEMIC FIBROSIS [None]
  - PERONEAL NERVE PALSY [None]
  - FALL [None]
